FAERS Safety Report 5519738-8 (Version None)
Quarter: 2007Q4

REPORT INFORMATION
  Report Type: 
  Country: None (occurrence: None)
  Receive Date: 20071116
  Receipt Date: 20070827
  Transmission Date: 20080405
  Serious: No
  Sender: FDA-Public Use
  Company Number: A0666876A

PATIENT
  Age: 82 Year
  Sex: Female

DRUGS (7)
  1. COREG CR [Suspect]
     Indication: CARDIOMYOPATHY
     Dosage: 50MG PER DAY
     Route: 048
     Dates: start: 20070101
  2. ALTACE [Concomitant]
  3. DIETARY SUPPLEMENT [Concomitant]
  4. RED YEAST RICE [Concomitant]
  5. MULTI-VITAMIN [Concomitant]
  6. LUTEIN [Concomitant]
  7. BILBERRY [Concomitant]

REACTIONS (6)
  - BLOOD PRESSURE INCREASED [None]
  - CRYING [None]
  - DENTAL CARIES [None]
  - FATIGUE [None]
  - INSOMNIA [None]
  - STRESS [None]
